FAERS Safety Report 20983617 (Version 1)
Quarter: 2022Q2

REPORT INFORMATION
  Report Type: Report from Study
  Country: US (occurrence: US)
  Receive Date: 20220620
  Receipt Date: 20220620
  Transmission Date: 20220720
  Serious: Yes (Death, Hospitalization)
  Sender: FDA-Public Use
  Company Number: US-ABBVIE-22K-163-4349287-00

PATIENT
  Age: 72 Year
  Sex: Female
  Weight: 55.388 kg

DRUGS (20)
  1. VENCLEXTA [Suspect]
     Active Substance: VENETOCLAX
     Indication: Acute myeloid leukaemia
     Route: 048
  2. ZOVIRAX [Concomitant]
     Active Substance: ACYCLOVIR
     Indication: Essential thrombocythaemia
     Route: 048
  3. NORVASC [Concomitant]
     Active Substance: AMLODIPINE BESYLATE
     Indication: Acute myeloid leukaemia
     Route: 048
  4. IRON [Concomitant]
     Active Substance: IRON
     Indication: Product used for unknown indication
  5. ZYRTEC [Concomitant]
     Active Substance: CETIRIZINE HYDROCHLORIDE
     Indication: Product used for unknown indication
     Route: 048
  6. CYANOCOBALAMIN [Concomitant]
     Active Substance: CYANOCOBALAMIN
     Indication: Product used for unknown indication
     Route: 060
  7. RESTASIS [Concomitant]
     Active Substance: CYCLOSPORINE
     Indication: Acute myeloid leukaemia
     Dosage: 1 DROP IN BOTH EYES TWO TIMES A DAY FOR 90 DAYS
     Route: 047
  8. LOVENOX [Concomitant]
     Active Substance: ENOXAPARIN SODIUM
     Indication: Deep vein thrombosis
     Dosage: INJECT 0.5 ML (50 MG TOTAL) UNDER THE SKIN EVERY 12 HOURS FOR 30 DAYS
     Route: 058
  9. FOLVITE [Concomitant]
     Active Substance: FOLIC ACID
     Indication: Product used for unknown indication
     Route: 048
  10. HYDROCORTISONE [Concomitant]
     Active Substance: HYDROCORTISONE
     Indication: Acute myeloid leukaemia
     Route: 061
  11. SYNTHROID [Concomitant]
     Active Substance: LEVOTHYROXINE SODIUM
     Indication: Product used for unknown indication
     Dosage: 50 MCG EVERY OTHER DAY 75 MCG EVERY OTHER DAY
     Dates: start: 20210324
  12. SYNTHROID [Concomitant]
     Active Substance: LEVOTHYROXINE SODIUM
     Dosage: 50 MCG EVERY OTHER DAY 75 MCG EVERY OTHER DAY
     Dates: start: 20210324
  13. TOPROL XL [Concomitant]
     Active Substance: METOPROLOL SUCCINATE
     Indication: Essential thrombocythaemia
     Dosage: 2 TABLETS (50 MILLIGRAM) BY MOUTH DAILY FOR 270 DAYS
     Route: 048
  14. TOPROL XL [Concomitant]
     Active Substance: METOPROLOL SUCCINATE
     Indication: Essential thrombocythaemia
     Dosage: 2 TABLETS (50 MILLIGRAM) BY MOUTH DAILY FOR 270 DAYS
     Route: 048
  15. PERCOCET [Concomitant]
     Active Substance: ACETAMINOPHEN\OXYCODONE HYDROCHLORIDE
     Indication: Pain
     Dosage: TAKE 1 TABLET BY MOUTH EVERY SIX HOURS AS NEED; 5-325 MG TABLET
     Route: 048
  16. PROTONIX [Concomitant]
     Active Substance: PANTOPRAZOLE SODIUM
     Indication: Essential thrombocythaemia
     Route: 048
  17. COMPAZINE [Concomitant]
     Active Substance: PROCHLORPERAZINE MALEATE
     Indication: Essential thrombocythaemia
     Dosage: TAKE 1 TABLET 5 MG TABLET BY MOUTH EVERY SIX HOURS AS NEEDED FOR UP TO 270 DAYS
     Route: 048
  18. COMPAZINE [Concomitant]
     Active Substance: PROCHLORPERAZINE MALEATE
     Indication: Vomiting
  19. COMPAZINE [Concomitant]
     Active Substance: PROCHLORPERAZINE MALEATE
     Indication: Nausea
  20. TACROLIMUS [Concomitant]
     Active Substance: TACROLIMUS
     Indication: Acute myeloid leukaemia
     Dosage: TAKE 2 CAPSULES BY MOUTH 2 TIMES A DAY
     Route: 048

REACTIONS (4)
  - Acute myeloid leukaemia [Fatal]
  - Cardio-respiratory arrest [Fatal]
  - Stem cell transplant [Not Recovered/Not Resolved]
  - Leukaemia [Not Recovered/Not Resolved]

NARRATIVE: CASE EVENT DATE: 20220401
